FAERS Safety Report 9152522 (Version 3)
Quarter: 2013Q2

REPORT INFORMATION
  Report Type: Report from Study
  Country: US (occurrence: US)
  Receive Date: 20130308
  Receipt Date: 20130627
  Transmission Date: 20140414
  Serious: Yes (Other)
  Sender: FDA-Public Use
  Company Number: US-ABBOTT-13P-163-1056783-00

PATIENT
  Age: 76 Year
  Sex: Male
  Weight: 51 kg

DRUGS (6)
  1. HUMIRA [Suspect]
     Indication: CROHN^S DISEASE
     Dates: start: 20121019, end: 20130202
  2. RADIATION [Suspect]
     Indication: BRAIN NEOPLASM
  3. NEXIUM [Concomitant]
     Indication: GASTRIC DISORDER
  4. MAGNESIUM OXIDE [Concomitant]
     Indication: PRODUCT USED FOR UNKNOWN INDICATION
  5. COREG [Concomitant]
     Indication: HYPERTENSION
  6. VITAMIN B 12 [Concomitant]
     Indication: VITAMIN B12 DEFICIENCY

REACTIONS (7)
  - Gait disturbance [Not Recovered/Not Resolved]
  - Brain neoplasm [Not Recovered/Not Resolved]
  - Headache [Not Recovered/Not Resolved]
  - Inflammation [Unknown]
  - Drug ineffective [Unknown]
  - Drug ineffective [Not Recovered/Not Resolved]
  - Colorectal cancer metastatic [Unknown]
